FAERS Safety Report 5215156-0 (Version None)
Quarter: 2006Q4

REPORT INFORMATION
  Report Type: 
  Country: None (occurrence: None)
  Receive Date: 20061107
  Receipt Date: 20060630
  Transmission Date: 20070319
  Serious: No
  Sender: FDA-Public Use
  Company Number: 200614386BWH

PATIENT
  Age: 87 Year
  Sex: Male

DRUGS (10)
  1. LEVITRA [Suspect]
     Indication: ERECTILE DYSFUNCTION
     Dosage: 20 MG, ONCE, ORAL - SEE IMAGE
     Route: 048
     Dates: start: 20051201
  2. LEVITRA [Suspect]
     Indication: ERECTILE DYSFUNCTION
     Dosage: 20 MG, ONCE, ORAL - SEE IMAGE
     Route: 048
     Dates: start: 20060602
  3. LEVITRA [Suspect]
     Indication: ERECTILE DYSFUNCTION
     Dosage: 20 MG, ONCE, ORAL - SEE IMAGE
     Route: 048
     Dates: start: 20060616
  4. LEVITRA [Suspect]
     Indication: ERECTILE DYSFUNCTION
     Dosage: 20 MG, ONCE, ORAL - SEE IMAGE
     Route: 048
     Dates: start: 20060628
  5. ZOCOR [Concomitant]
  6. ACCUPRIL [Concomitant]
  7. ASPIRIN LOW [Concomitant]
  8. COREG [Concomitant]
  9. COLCHICINE [Concomitant]
  10. CIALIS [Concomitant]

REACTIONS (1)
  - VITREOUS FLOATERS [None]
